FAERS Safety Report 13726008 (Version 4)
Quarter: 2017Q3

REPORT INFORMATION
  Report Type: Spontaneous
  Country: DE (occurrence: DE)
  Receive Date: 20170706
  Receipt Date: 20170830
  Transmission Date: 20171127
  Serious: Yes (Hospitalization)
  Sender: FDA-Public Use
  Company Number: DE-SA-2017SA120575

PATIENT
  Age: 68 Year
  Sex: Female
  Weight: 62 kg

DRUGS (11)
  1. OXALIPLATIN. [Suspect]
     Active Substance: OXALIPLATIN
     Dosage: GLUCOSE 5% FREEFLEX,INFUSION 2 H
     Route: 042
     Dates: start: 20170608, end: 20170608
  2. DEXAMETHASONE. [Concomitant]
     Active Substance: DEXAMETHASONE
     Dosage: SHORT INFUSION 15 MINS, VOLUME 100 ML
     Route: 065
     Dates: start: 20170608, end: 20170608
  3. ONDANSETRON [Concomitant]
     Active Substance: ONDANSETRON
     Dosage: SHORT INFUSION 15 MINS VOLUME 100 ML
     Route: 065
     Dates: start: 20170608, end: 20170608
  4. ONDANSETRON [Concomitant]
     Active Substance: ONDANSETRON
     Route: 048
     Dates: start: 20170609
  5. PEGFILGRASTIM [Concomitant]
     Active Substance: PEGFILGRASTIM
  6. FOSAPREPITANT [Suspect]
     Active Substance: FOSAPREPITANT
     Dosage: NACI 0.9% FREEFLEX
     Route: 065
     Dates: start: 20170608, end: 20170608
  7. DEXAMETHASONE. [Concomitant]
     Active Substance: DEXAMETHASONE
     Route: 048
     Dates: start: 20170609
  8. ONDANSETRON [Concomitant]
     Active Substance: ONDANSETRON
     Route: 048
     Dates: start: 20170609
  9. OXALIPLATIN. [Suspect]
     Active Substance: OXALIPLATIN
     Route: 042
     Dates: start: 20170424, end: 20170424
  10. CALCIUM FOLINATE [Suspect]
     Active Substance: LEUCOVORIN CALCIUM
     Dosage: NACI 0.9% FREEFLEX
     Route: 065
     Dates: start: 20170608, end: 20170608
  11. FLUOROURACIL. [Concomitant]
     Active Substance: FLUOROURACIL
     Dosage: NACI 0.9% FREEFLEX
     Route: 065
     Dates: start: 20170608, end: 20170608

REACTIONS (4)
  - Diet refusal [Unknown]
  - Delusion [Not Recovered/Not Resolved]
  - Mental disorder [Unknown]
  - Adverse event [Unknown]

NARRATIVE: CASE EVENT DATE: 20170619
